FAERS Safety Report 7296345-0 (Version None)
Quarter: 2011Q1

REPORT INFORMATION
  Report Type: 
  Country: None (occurrence: None)
  Receive Date: 20110216
  Receipt Date: 20110210
  Transmission Date: 20110831
  Serious: Yes (Other)
  Sender: FDA-Public Use
  Company Number: CA-JNJFOC-20110204026

PATIENT
  Sex: Female
  Weight: 47 kg

DRUGS (4)
  1. REMICADE [Suspect]
     Indication: ANKYLOSING SPONDYLITIS
     Route: 042
  2. NEXIUM [Concomitant]
     Route: 048
  3. REACTINE [Concomitant]
     Route: 048
  4. CELEBREX [Concomitant]
     Route: 048

REACTIONS (1)
  - NEPHROLITHIASIS [None]
